FAERS Safety Report 6394980-5 (Version None)
Quarter: 2009Q4

REPORT INFORMATION
  Report Type: 
  Country: None (occurrence: None)
  Receive Date: 20091009
  Receipt Date: 20091006
  Transmission Date: 20100525
  Serious: Yes (Hospitalization)
  Sender: FDA-Public Use
  Company Number: US-BRISTOL-MYERS SQUIBB COMPANY-14749998

PATIENT
  Age: 74 Year
  Sex: Female
  Weight: 63 kg

DRUGS (7)
  1. ERBITUX [Suspect]
     Indication: NON-SMALL CELL LUNG CANCER
     Route: 042
     Dates: start: 20090602, end: 20090721
  2. CARBOPLATIN [Suspect]
     Indication: NON-SMALL CELL LUNG CANCER
     Route: 042
     Dates: start: 20090602, end: 20090721
  3. TAXOL [Suspect]
     Indication: NON-SMALL CELL LUNG CANCER
     Route: 042
     Dates: start: 20090602, end: 20090721
  4. RADIATION THERAPY [Suspect]
     Indication: NON-SMALL CELL LUNG CANCER
     Dosage: 1 DF = 66GY NO OF FRACTION: 33 NO OF ELAPSED DAYS: 45
     Dates: start: 20090602, end: 20090724
  5. LIDOCAINE [Concomitant]
  6. MEGACE [Concomitant]
  7. HYDROCODONE [Concomitant]

REACTIONS (1)
  - DECREASED APPETITE [None]
